FAERS Safety Report 5538289-8 (Version None)
Quarter: 2007Q4

REPORT INFORMATION
  Report Type: 
  Country: None (occurrence: None)
  Receive Date: 20071123
  Receipt Date: 20070827
  Transmission Date: 20080405
  Serious: Yes (Hospitalization, Other)
  Sender: FDA-Public Use
  Company Number: US-JNJFOC-20070505467

PATIENT
  Age: 62 Year
  Sex: Male
  Weight: 71.6683 kg

DRUGS (8)
  1. LEVAQUIN [Suspect]
     Indication: BRONCHITIS
     Dosage: 400 MG, 1 IN 1 DAY, ORAL
     Route: 048
     Dates: start: 20061201, end: 20061201
  2. AVELOX [Suspect]
     Indication: DRUG USE FOR UNKNOWN INDICATION
  3. DEXAMETHASONE TAB [Concomitant]
  4. THEOPHYLLINE [Concomitant]
  5. ALTACE [Concomitant]
  6. COMVIENT             (COMBIVENT) SPRAY [Concomitant]
  7. ALBUTEROL [Concomitant]
  8. ADVIR            (IBUPROFEN) [Concomitant]

REACTIONS (1)
  - HYPERSENSITIVITY [None]
